FAERS Safety Report 9845418 (Version 1)
Quarter: 2014Q1

REPORT INFORMATION
  Report Type: Spontaneous
  Country: US (occurrence: None)
  Receive Date: 20140123
  Receipt Date: 20140123
  Transmission Date: 20141002
  Serious: Yes (Disabling)
  Sender: FDA-Public Use
  Company Number: None

PATIENT
  Age: 39 Year
  Sex: Female
  Weight: 94.8 kg

DRUGS (3)
  1. ESCITALOPRAM [Suspect]
     Indication: DEPRESSION
     Dosage: 1 TAB DAILY ONCE DAILY TAKEN BY MOUTH
     Route: 048
     Dates: start: 20140102, end: 20140113
  2. ESCITALOPRAM [Suspect]
     Indication: PANIC DISORDER
     Dosage: 1 TAB DAILY ONCE DAILY TAKEN BY MOUTH
     Route: 048
     Dates: start: 20140102, end: 20140113
  3. ESCITALOPRAM [Suspect]
     Indication: ANXIETY DISORDER
     Dosage: 1 TAB DAILY ONCE DAILY TAKEN BY MOUTH
     Route: 048
     Dates: start: 20140102, end: 20140113

REACTIONS (4)
  - Hypertension [None]
  - Palpitations [None]
  - Product substitution issue [None]
  - Product quality issue [None]
